FAERS Safety Report 9636408 (Version 1)
Quarter: 2013Q4

REPORT INFORMATION
  Report Type: Report from Study
  Country: FR (occurrence: FR)
  Receive Date: 20131021
  Receipt Date: 20131021
  Transmission Date: 20140711
  Serious: Yes (Hospitalization)
  Sender: FDA-Public Use
  Company Number: FR-US-EMD SERONO, INC.-7243228

PATIENT
  Age: 30 Year
  Sex: Female

DRUGS (1)
  1. REBIF [Suspect]
     Indication: MULTIPLE SCLEROSIS
     Dates: start: 20130923

REACTIONS (4)
  - Multiple sclerosis relapse [Unknown]
  - Migraine [Unknown]
  - Chills [Unknown]
  - Pain [Unknown]
